FAERS Safety Report 9499959 (Version 3)
Quarter: 2016Q2

REPORT INFORMATION
  Report Type: Spontaneous
  Country: US (occurrence: US)
  Receive Date: 20130905
  Receipt Date: 20160510
  Transmission Date: 20160815
  Serious: No
  Sender: FDA-Public Use
  Company Number: US-PFIZER INC-2013255040

PATIENT
  Sex: Female

DRUGS (4)
  1. TOPAMAX [Suspect]
     Active Substance: TOPIRAMATE
     Dosage: UNK
  2. LOPID [Suspect]
     Active Substance: GEMFIBROZIL
     Dosage: UNK
  3. MAXALT [Concomitant]
     Active Substance: RIZATRIPTAN BENZOATE
     Dosage: UNK
  4. ARTHROTEC [Concomitant]
     Active Substance: DICLOFENAC SODIUM\MISOPROSTOL
     Dosage: UNK

REACTIONS (2)
  - Drug hypersensitivity [Recovered/Resolved]
  - Rash [Unknown]
